FAERS Safety Report 7860439-9 (Version None)
Quarter: 2011Q4

REPORT INFORMATION
  Report Type: 
  Country: None (occurrence: None)
  Receive Date: 20111027
  Receipt Date: 20111021
  Transmission Date: 20120403
  Serious: Yes (Hospitalization, Other)
  Sender: FDA-Public Use
  Company Number: PHHY2010US39990

PATIENT
  Sex: Female
  Weight: 65.1 kg

DRUGS (7)
  1. EXJADE [Suspect]
     Dosage: 2000 MG DAILY
     Route: 048
     Dates: start: 20100101, end: 20100614
  2. ASPIRIN [Concomitant]
     Indication: CEREBROVASCULAR ACCIDENT
     Dosage: 81 MG DAILY
     Route: 048
     Dates: start: 20061001, end: 20100401
  3. HYDROXYUREA [Suspect]
     Dosage: 1500 MG DAILY
     Route: 048
     Dates: start: 20041221, end: 20100401
  4. EXJADE [Suspect]
     Indication: SICKLE CELL ANAEMIA
     Dosage: 1500 MG, QD
     Route: 048
     Dates: start: 20070110, end: 20091201
  5. MULTI-VITAMINS [Concomitant]
     Indication: PREGNANCY
     Route: 048
     Dates: start: 20060401
  6. FOLIC ACID [Concomitant]
     Indication: SICKLE CELL ANAEMIA
     Dosage: 1 MG
     Route: 048
  7. XOPENEX [Concomitant]

REACTIONS (4)
  - PULMONARY HYPERTENSION [None]
  - ACUTE CHEST SYNDROME [None]
  - MATERNAL EXPOSURE DURING PREGNANCY [None]
  - NORMAL NEWBORN [None]
